FAERS Safety Report 4630907-1 (Version None)
Quarter: 2005Q2

REPORT INFORMATION
  Report Type: 
  Country: None (occurrence: None)
  Receive Date: 20050407
  Receipt Date: 20050407
  Transmission Date: 20051028
  Serious: Yes (Hospitalization)
  Sender: FDA-Public Use
  Company Number: None

PATIENT
  Sex: Male

DRUGS (10)
  1. CEPHALEXIN [Suspect]
     Indication: CELLULITIS
     Dosage: 500 MG QID
  2. ALLOPURINOL [Concomitant]
  3. FESO4 [Concomitant]
  4. GLYBURIDE [Concomitant]
  5. IRBESARTAN [Concomitant]
  6. METHYDOPA [Concomitant]
  7. AMLODIPINE [Concomitant]
  8. WARFARIN SODIUM [Concomitant]
  9. SIMVASTATIN [Concomitant]
  10. LASIX [Concomitant]

REACTIONS (2)
  - INGUINAL HERNIA, OBSTRUCTIVE [None]
  - RENAL FAILURE ACUTE [None]
